FAERS Safety Report 11099665 (Version 1)
Quarter: 2015Q2

REPORT INFORMATION
  Report Type: Spontaneous
  Country: PK (occurrence: PK)
  Receive Date: 20150508
  Receipt Date: 20150508
  Transmission Date: 20150821
  Serious: Yes (Other)
  Sender: FDA-Public Use
  Company Number: PK-MYLANLABS-2015M1015042

PATIENT

DRUGS (4)
  1. MANNITOL. [Suspect]
     Active Substance: MANNITOL
     Route: 065
  2. DEXAMETHASONE. [Suspect]
     Active Substance: DEXAMETHASONE
     Route: 042
  3. GLUCOSE [Suspect]
     Active Substance: DEXTROSE
     Route: 042
  4. DOPAMINE [Concomitant]
     Active Substance: DOPAMINE\DOPAMINE HYDROCHLORIDE
     Route: 065

REACTIONS (2)
  - Hyperglycaemia [Recovered/Resolved]
  - Hyperosmolar hyperglycaemic state [Unknown]
